FAERS Safety Report 5716265-X (Version None)
Quarter: 2008Q2

REPORT INFORMATION
  Report Type: 
  Country: None (occurrence: None)
  Receive Date: 20080424
  Receipt Date: 20080422
  Transmission Date: 20081010
  Serious: Yes (Hospitalization, Other)
  Sender: FDA-Public Use
  Company Number: B0318648A

PATIENT
  Age: 19 Year
  Sex: Female

DRUGS (5)
  1. EPOPROSTENOL SODIUM [Suspect]
     Indication: PULMONARY HYPERTENSION
     Dosage: 5NGKM PER DAY
     Route: 042
     Dates: start: 20011120
  2. DIPYRIDAMOLE [Suspect]
     Indication: ANTIPLATELET THERAPY
     Dosage: 25MG TWICE PER DAY
     Route: 048
     Dates: start: 20011009, end: 20020621
  3. WARFARIN POTASSIUM [Suspect]
     Indication: ANTICOAGULANT THERAPY
     Dosage: 2MG PER DAY
     Route: 048
     Dates: start: 20011119
  4. FUROSEMIDE [Concomitant]
     Indication: CARDIAC FAILURE
     Dosage: 10MG PER DAY
     Route: 048
     Dates: start: 20011009
  5. ENALAPRIL MALEATE [Concomitant]
     Indication: CARDIAC FAILURE
     Dosage: 2.5MG PER DAY
     Route: 048
     Dates: start: 20011121

REACTIONS (2)
  - CATHETER RELATED COMPLICATION [None]
  - HAEMOPTYSIS [None]
